FAERS Safety Report 18809901 (Version 1)
Quarter: 2021Q1

REPORT INFORMATION
  Report Type: Spontaneous
  Country: CN (occurrence: CN)
  Receive Date: 20210129
  Receipt Date: 20210129
  Transmission Date: 20210419
  Serious: Yes (Other)
  Sender: FDA-Public Use
  Company Number: CN-PFIZER INC-2021064428

PATIENT
  Age: 45 Year
  Sex: Female
  Weight: 62.5 kg

DRUGS (11)
  1. METRONIDAZOLE\SODIUM CHLORIDE. [Concomitant]
     Active Substance: METRONIDAZOLE\SODIUM CHLORIDE
     Indication: MASS
  2. TAZOCIN [Suspect]
     Active Substance: PIPERACILLIN SODIUM\TAZOBACTAM SODIUM
     Indication: ANTI-INFECTIVE THERAPY
  3. PIPERACILLIN AND TAZOBACTAM [Concomitant]
     Active Substance: PIPERACILLIN SODIUM\TAZOBACTAM SODIUM
     Indication: MASS
  4. SODIUM CHLORIDE. [Concomitant]
     Active Substance: SODIUM CHLORIDE
     Dosage: 100 ML, 3X/DAY
     Route: 041
     Dates: start: 20210119, end: 20210119
  5. PIPERACILLIN AND TAZOBACTAM [Concomitant]
     Active Substance: PIPERACILLIN SODIUM\TAZOBACTAM SODIUM
     Indication: PELVIC INFLAMMATORY DISEASE
     Dosage: 2.5 G, 3X/DAY
     Route: 041
     Dates: start: 20210101, end: 20210119
  6. SODIUM CHLORIDE. [Concomitant]
     Active Substance: SODIUM CHLORIDE
     Indication: VEHICLE SOLUTION USE
     Dosage: 100 ML, 3X/DAY
     Route: 041
     Dates: start: 20210101, end: 20210119
  7. AZITHROMYCIN ANHYDROUS. [Concomitant]
     Active Substance: AZITHROMYCIN ANHYDROUS
     Indication: PELVIC INFLAMMATORY DISEASE
     Dosage: 0.250 G, 1X/DAY
     Route: 041
     Dates: start: 20210101, end: 20210119
  8. TAZOCIN [Suspect]
     Active Substance: PIPERACILLIN SODIUM\TAZOBACTAM SODIUM
     Indication: HYPERPYREXIA
     Dosage: 4.5 G, 3X/DAY
     Route: 041
     Dates: start: 20210119, end: 20210119
  9. AZITHROMYCIN ANHYDROUS. [Concomitant]
     Active Substance: AZITHROMYCIN ANHYDROUS
     Indication: MASS
  10. METRONIDAZOLE\SODIUM CHLORIDE. [Concomitant]
     Active Substance: METRONIDAZOLE\SODIUM CHLORIDE
     Indication: PELVIC INFLAMMATORY DISEASE
     Dosage: 0.5 G, 2X/DAY
     Route: 041
     Dates: start: 20210101, end: 20210119
  11. SODIUM CHLORIDE. [Concomitant]
     Active Substance: SODIUM CHLORIDE
     Indication: VEHICLE SOLUTION USE
     Dosage: 250 ML, 1X/DAY
     Route: 041
     Dates: start: 20210101, end: 20210119

REACTIONS (4)
  - Chest discomfort [Recovering/Resolving]
  - Asthenia [Recovering/Resolving]
  - Tachypnoea [Recovering/Resolving]
  - Dyspnoea [Recovering/Resolving]

NARRATIVE: CASE EVENT DATE: 20210119
